FAERS Safety Report 25646767 (Version 3)
Quarter: 2025Q3

REPORT INFORMATION
  Report Type: Spontaneous
  Country: EU (occurrence: EU)
  Receive Date: 20250805
  Receipt Date: 20250918
  Transmission Date: 20251021
  Serious: No
  Sender: BOEHRINGER INGELHEIM
  Company Number: EU-BoehringerIngelheim-2025-BI-086829

PATIENT
  Sex: Male
  Weight: 72 kg

DRUGS (7)
  1. OFEV [Suspect]
     Active Substance: NINTEDANIB
     Indication: Idiopathic pulmonary fibrosis
  2. OXYGEN [Concomitant]
     Active Substance: OXYGEN
     Indication: Product used for unknown indication
  3. TADALAFIL [Concomitant]
     Active Substance: TADALAFIL
     Indication: Pulmonary hypertension
  4. RAMIPRIL [Concomitant]
     Active Substance: RAMIPRIL
     Indication: Myocardial ischaemia
  5. PREDNISOLONE [Concomitant]
     Active Substance: PREDNISOLONE
     Indication: Pulmonary fibrosis
  6. BISOPROLOL [Concomitant]
     Active Substance: BISOPROLOL
     Indication: Myocardial ischaemia
  7. KARDEGIC [Concomitant]
     Active Substance: ASPIRIN DL-LYSINE
     Indication: Myocardial ischaemia

REACTIONS (3)
  - Disease progression [Not Recovered/Not Resolved]
  - Abdominal pain [Unknown]
  - Diarrhoea [Unknown]
